FAERS Safety Report 16882807 (Version 1)
Quarter: 2019Q4

REPORT INFORMATION
  Report Type: Spontaneous
  Country: IT (occurrence: IT)
  Receive Date: 20191003
  Receipt Date: 20191003
  Transmission Date: 20200122
  Serious: Yes (Hospitalization, Other)
  Sender: FDA-Public Use
  Company Number: IT-AUROBINDO-AUR-APL-2013-08884

PATIENT
  Age: 58 Year
  Sex: Male

DRUGS (5)
  1. TAPAZOLE [Concomitant]
     Active Substance: METHIMAZOLE
     Indication: HYPERTHYROIDISM
     Dosage: 5 MG,DAILY,
     Route: 065
  2. HYDROCHLOROTHIAZIDE;NEBIVOLOL HYDROCHLORIDE [Concomitant]
     Active Substance: HYDROCHLOROTHIAZIDE\NEBIVOLOL HYDROCHLORIDE
     Indication: HYPERTENSION
     Dosage: 12.5 /2.5 MG/DAY
     Route: 065
  3. DOXAZOSIN AUROBINDO 2MG TABLETS [Suspect]
     Active Substance: DOXAZOSIN MESYLATE
     Indication: HYPERTENSION
     Dosage: 2 MG,DAILY
     Route: 065
  4. AMOXICILLIN / CLAVULANIC ACID AUROBINDO 875/125MG FILM-COATED TABLET [Suspect]
     Active Substance: AMOXICILLIN\CLAVULANIC ACID
     Indication: PROPHYLAXIS
  5. AMOXICILLIN / CLAVULANIC ACID AUROBINDO 875/125MG FILM-COATED TABLET [Suspect]
     Active Substance: AMOXICILLIN\CLAVULANIC ACID
     Indication: PERIODONTAL DISEASE
     Dosage: UNK,UNK,,875/125 MG
     Route: 065
     Dates: start: 201201

REACTIONS (7)
  - Rash [Recovered/Resolved]
  - Electrocardiogram ST segment elevation [Recovered/Resolved]
  - Anaphylactic reaction [Recovered/Resolved]
  - Acute coronary syndrome [Recovered/Resolved]
  - Kounis syndrome [Recovered/Resolved]
  - Chest pain [Recovered/Resolved]
  - Dyspnoea [Recovered/Resolved]
